FAERS Safety Report 7308833-9 (Version None)
Quarter: 2011Q1

REPORT INFORMATION
  Report Type: 
  Country: None (occurrence: None)
  Receive Date: 20110211
  Receipt Date: 20110203
  Transmission Date: 20110831
  Serious: Yes (Other)
  Sender: FDA-Public Use
  Company Number: LTI2011A00029

PATIENT
  Age: 64 Year
  Sex: Male

DRUGS (2)
  1. ACTOS [Suspect]
     Indication: TYPE 2 DIABETES MELLITUS
     Dosage: 30 MG (30 MG,1 IN 1 D) ORAL ; 15 MG (15 MG,1 IN 1 D) ORAL
     Route: 048
     Dates: start: 20080201
  2. ACTOS [Suspect]
     Indication: TYPE 2 DIABETES MELLITUS
     Dosage: 30 MG (30 MG,1 IN 1 D) ORAL ; 15 MG (15 MG,1 IN 1 D) ORAL
     Route: 048
     Dates: start: 20080201

REACTIONS (1)
  - BLADDER CANCER [None]
